FAERS Safety Report 14292059 (Version 1)
Quarter: 2017Q4

REPORT INFORMATION
  Report Type: Spontaneous
  Country: US (occurrence: US)
  Receive Date: 20171215
  Receipt Date: 20171215
  Transmission Date: 20180321
  Serious: Yes (Hospitalization)
  Sender: FDA-Public Use
  Company Number: US-PARI RESPIRATORY EQUIPMENT, INC.-2017PAR00035

PATIENT
  Age: 22 Year
  Sex: Female

DRUGS (10)
  1. PROMETHAZINE [Concomitant]
     Active Substance: PROMETHAZINE\PROMETHAZINE HYDROCHLORIDE
  2. FLOVENT [Concomitant]
     Active Substance: FLUTICASONE PROPIONATE
  3. ORKAMBI [Suspect]
     Active Substance: IVACAFTOR\LUMACAFTOR
     Indication: CYSTIC FIBROSIS
     Dosage: 2 DOSAGE UNITS, 2X/DAY
     Route: 048
     Dates: start: 20151223
  4. DOXYCYCLINE. [Concomitant]
     Active Substance: DOXYCYCLINE
  5. PULMOZYME [Concomitant]
     Active Substance: DORNASE ALFA
  6. KITABIS PAK [Suspect]
     Active Substance: TOBRAMYCIN
     Indication: CYSTIC FIBROSIS
     Dosage: 1 DOSAGE UNITS, 2X/DAY
     Route: 055
     Dates: start: 20170208
  7. CREON [Concomitant]
     Active Substance: PANCRELIPASE AMYLASE\PANCRELIPASE LIPASE\PANCRELIPASE PROTEASE
  8. VITAMIN D [Concomitant]
     Active Substance: CHOLECALCIFEROL
  9. LORATADINE. [Concomitant]
     Active Substance: LORATADINE
  10. FLUTICASONE. [Concomitant]
     Active Substance: FLUTICASONE

REACTIONS (1)
  - Respiration abnormal [Unknown]

NARRATIVE: CASE EVENT DATE: 20171128
